FAERS Safety Report 20370585 (Version 7)
Quarter: 2022Q3

REPORT INFORMATION
  Report Type: Report from Study
  Country: TR (occurrence: None)
  Receive Date: 20220124
  Receipt Date: 20220921
  Transmission Date: 20221026
  Serious: Yes (Hospitalization)
  Sender: FDA-Public Use
  Company Number: TR-ROCHE-3004671

PATIENT
  Age: 67 Year
  Sex: Female
  Weight: 68.2 kg

DRUGS (85)
  1. TIRAGOLUMAB [Suspect]
     Active Substance: TIRAGOLUMAB
     Indication: Small cell lung cancer metastatic
     Dosage: DOSE LAST STUDY DRUG ADMIN PRIOR AE IS 600 MGDOSE LAST STUDY DRUG ADMIN PRIOR SAE IS 600 MG
     Route: 042
     Dates: start: 20210308
  2. ATEZOLIZUMAB [Suspect]
     Active Substance: ATEZOLIZUMAB
     Indication: Small cell lung cancer metastatic
     Dosage: DOSE LAST STUDY DRUG ADMIN PRIOR AE/SAE IS 1200 MG ON 29/DEC/2021.
     Route: 042
     Dates: start: 20210308
  3. CARBOPLATIN [Suspect]
     Active Substance: CARBOPLATIN
     Indication: Small cell lung cancer metastatic
     Dosage: DOSE LAST STUDY DRUG ADMIN PRIOR AE/SAE IS 282 MG ON 10/MAY/2021
     Route: 042
     Dates: start: 20210308
  4. ETOPOSIDE [Suspect]
     Active Substance: ETOPOSIDE
     Indication: Small cell lung cancer metastatic
     Dosage: DOSE LAST STUDY DRUG ADMIN PRIOR AE IS 90 MG WAS ON 29/DEC/2021?START DATE OF MOST RECENT DOSE OF ST
     Route: 042
     Dates: start: 20210308
  5. ASPIRIN [Concomitant]
     Active Substance: ASPIRIN
     Indication: Hypertension
     Route: 048
     Dates: start: 2011
  6. ASPIRIN [Concomitant]
     Active Substance: ASPIRIN
     Indication: Dyspnoea
     Dates: start: 20220711, end: 20220717
  7. GLIFOR (TURKEY) [Concomitant]
     Indication: Diabetes mellitus
     Route: 048
     Dates: start: 2011
  8. METOPROLOL [Concomitant]
     Active Substance: METOPROLOL
     Indication: Hypertension
     Route: 048
     Dates: start: 2011
  9. CIPRALEX [Concomitant]
     Active Substance: ESCITALOPRAM OXALATE
     Indication: Depression
     Route: 048
     Dates: start: 2011
  10. ENALAPRIL MALEATE\LERCANIDIPINE HYDROCHLORIDE [Concomitant]
     Active Substance: ENALAPRIL MALEATE\LERCANIDIPINE HYDROCHLORIDE
     Indication: Hypertension
     Route: 048
     Dates: start: 2011
  11. LANSOPRAZOLE [Concomitant]
     Active Substance: LANSOPRAZOLE
     Route: 048
  12. PALONOSETRON HYDROCHLORIDE [Concomitant]
     Active Substance: PALONOSETRON HYDROCHLORIDE
     Route: 042
     Dates: start: 20210308
  13. DOLADAMON [Concomitant]
     Indication: Myalgia
     Route: 048
     Dates: start: 20210805
  14. LEVOTHYROXINE SODIUM [Concomitant]
     Active Substance: LEVOTHYROXINE SODIUM
     Indication: Hypothyroidism
     Route: 048
     Dates: start: 20210916
  15. DERMABEL (TURKEY) [Concomitant]
     Indication: Rash
     Route: 061
     Dates: start: 20210916
  16. BEMIKS [Concomitant]
     Indication: Supportive care
     Route: 042
     Dates: start: 20220211, end: 20220211
  17. CYANOCOBALAMIN [Concomitant]
     Active Substance: CYANOCOBALAMIN
     Dosage: 1000
     Route: 042
     Dates: start: 20220211, end: 20220211
  18. LOSEC [Concomitant]
     Active Substance: OMEPRAZOLE
     Indication: General physical health deterioration
     Dates: start: 20220220, end: 20220224
  19. LOSEC [Concomitant]
     Active Substance: OMEPRAZOLE
     Dates: start: 20220410, end: 20220417
  20. LOSEC [Concomitant]
     Active Substance: OMEPRAZOLE
     Dates: start: 20220525, end: 20220602
  21. LOSEC [Concomitant]
     Active Substance: OMEPRAZOLE
     Dates: start: 20220711, end: 20220716
  22. LOSEC [Concomitant]
     Active Substance: OMEPRAZOLE
     Dates: start: 20220722, end: 20220727
  23. MEROPENEM [Concomitant]
     Active Substance: MEROPENEM
     Dates: start: 20220220, end: 20220224
  24. MEROPENEM [Concomitant]
     Active Substance: MEROPENEM
     Dates: start: 20220722, end: 20220728
  25. COMBIVENT [Concomitant]
     Active Substance: ALBUTEROL SULFATE\IPRATROPIUM BROMIDE
     Indication: General physical health deterioration
     Dates: start: 20220525, end: 20220602
  26. COMBIVENT [Concomitant]
     Active Substance: ALBUTEROL SULFATE\IPRATROPIUM BROMIDE
     Dates: start: 20220722, end: 20220728
  27. COMBIVENT [Concomitant]
     Active Substance: ALBUTEROL SULFATE\IPRATROPIUM BROMIDE
     Dates: start: 20220220, end: 20220224
  28. PULMICORT TURBUHALER [Concomitant]
     Active Substance: BUDESONIDE
     Indication: General physical health deterioration
     Dates: start: 20220220, end: 20220224
  29. PULMICORT TURBUHALER [Concomitant]
     Active Substance: BUDESONIDE
     Dates: start: 20220525, end: 20220603
  30. PULMICORT TURBUHALER [Concomitant]
     Active Substance: BUDESONIDE
     Dates: start: 20220711, end: 20220711
  31. ALBUTEROL SULFATE\IPRATROPIUM BROMIDE [Concomitant]
     Active Substance: ALBUTEROL SULFATE\IPRATROPIUM BROMIDE
     Indication: General physical health deterioration
     Dates: start: 20220420, end: 20220422
  32. ALBUTEROL SULFATE\IPRATROPIUM BROMIDE [Concomitant]
     Active Substance: ALBUTEROL SULFATE\IPRATROPIUM BROMIDE
     Dates: start: 20220602, end: 20220606
  33. ALBUTEROL SULFATE\IPRATROPIUM BROMIDE [Concomitant]
     Active Substance: ALBUTEROL SULFATE\IPRATROPIUM BROMIDE
     Dates: start: 20220224, end: 20220225
  34. OKSAPAR [Concomitant]
     Indication: General physical health deterioration
     Dates: start: 20220224, end: 20220225
  35. OKSAPAR [Concomitant]
     Dates: start: 20220419, end: 20220420
  36. OKSAPAR [Concomitant]
     Dates: start: 20220602, end: 20220604
  37. HALOPERIDOL [Concomitant]
     Active Substance: HALOPERIDOL
     Indication: General physical health deterioration
     Dates: start: 20220222, end: 20220224
  38. MEROSID [Concomitant]
     Indication: General physical health deterioration
     Dates: start: 20220224, end: 20220225
  39. PREDNOL-L [Concomitant]
     Indication: Dyspnoea
     Route: 050
     Dates: start: 20220224, end: 20220224
  40. PREDNOL-L [Concomitant]
     Route: 050
     Dates: start: 20220410, end: 20220421
  41. PREDNOL-L [Concomitant]
     Route: 050
     Dates: start: 20220711, end: 20220713
  42. PREDNOL-L [Concomitant]
     Route: 042
     Dates: start: 20220525, end: 20220605
  43. PAROL [Concomitant]
     Active Substance: ACETAMINOPHEN
     Indication: Dyspnoea
     Dates: start: 20220225, end: 20220225
  44. PAROL [Concomitant]
     Active Substance: ACETAMINOPHEN
     Dates: start: 20220715, end: 20220715
  45. PAROL [Concomitant]
     Active Substance: ACETAMINOPHEN
     Dates: start: 20220727, end: 20220727
  46. PAROL [Concomitant]
     Active Substance: ACETAMINOPHEN
     Dates: start: 20220525, end: 20220606
  47. ASIST (TURKEY) [Concomitant]
     Indication: General physical health deterioration
     Dates: start: 20220410, end: 20220422
  48. ASIST (TURKEY) [Concomitant]
     Dates: start: 20220525, end: 20220605
  49. ENOXAPARIN SODIUM [Concomitant]
     Active Substance: ENOXAPARIN SODIUM
     Indication: General physical health deterioration
     Dates: start: 20220410, end: 20220422
  50. ENOXAPARIN SODIUM [Concomitant]
     Active Substance: ENOXAPARIN SODIUM
     Dates: start: 20220525, end: 20220602
  51. ENOXAPARIN SODIUM [Concomitant]
     Active Substance: ENOXAPARIN SODIUM
     Dates: start: 20220722, end: 20220727
  52. ENOXAPARIN SODIUM [Concomitant]
     Active Substance: ENOXAPARIN SODIUM
     Dates: start: 20220220, end: 20220224
  53. LEVOFLOXACIN [Concomitant]
     Active Substance: LEVOFLOXACIN
     Indication: General physical health deterioration
     Dates: start: 20220410, end: 20220417
  54. LEVOFLOXACIN [Concomitant]
     Active Substance: LEVOFLOXACIN
     Dates: start: 20220525, end: 20220603
  55. LEVOFLOXACIN [Concomitant]
     Active Substance: LEVOFLOXACIN
     Dates: start: 20220714, end: 20220716
  56. COMBIVENT [Concomitant]
     Active Substance: ALBUTEROL SULFATE\IPRATROPIUM BROMIDE
     Dates: start: 20220411, end: 20220419
  57. COMBIVENT [Concomitant]
     Active Substance: ALBUTEROL SULFATE\IPRATROPIUM BROMIDE
     Dates: start: 20220711, end: 20220717
  58. LASIX [Concomitant]
     Active Substance: FUROSEMIDE
     Dates: start: 20220411, end: 20220411
  59. LASIX [Concomitant]
     Active Substance: FUROSEMIDE
     Dates: start: 20220531, end: 20220602
  60. PULMICORT TURBUHALER [Concomitant]
     Active Substance: BUDESONIDE
     Indication: General physical health deterioration
     Dates: start: 20220415, end: 20220422
  61. INVANZ [Concomitant]
     Active Substance: ERTAPENEM SODIUM
     Indication: General physical health deterioration
     Dates: start: 20220418, end: 20220422
  62. ACETYLCYSTEINE [Concomitant]
     Active Substance: ACETYLCYSTEINE
     Indication: General physical health deterioration
     Dates: start: 20220420, end: 20220420
  63. MORFIN [Concomitant]
     Indication: General physical health deterioration
     Dates: start: 20220420, end: 20220420
  64. NYSTATIN [Concomitant]
     Active Substance: NYSTATIN
     Indication: General physical health deterioration
     Dates: start: 20220421, end: 20220422
  65. PAROL [Concomitant]
     Active Substance: ACETAMINOPHEN
     Indication: General physical health deterioration
     Dates: start: 20220525, end: 20220606
  66. PIPERACILLIN SODIUM\TAZOBACTAM SODIUM [Concomitant]
     Active Substance: PIPERACILLIN SODIUM\TAZOBACTAM SODIUM
     Indication: General physical health deterioration
     Dates: start: 20220525, end: 20220602
  67. DESAL (TURKEY) [Concomitant]
     Indication: General physical health deterioration
     Dates: start: 20220602, end: 20220606
  68. PROGAS [Concomitant]
     Indication: Dyspnoea
     Dates: start: 20220602, end: 20220605
  69. PROGAS [Concomitant]
     Dates: start: 20220716, end: 20220717
  70. PROGAS [Concomitant]
     Dates: start: 20220727, end: 20220728
  71. PROGAS [Concomitant]
     Dates: start: 20220419, end: 20220421
  72. RIFAMYCIN [Concomitant]
     Active Substance: RIFAMYCIN
     Indication: General physical health deterioration
     Dates: start: 20220602, end: 20220605
  73. TARGOCID [Concomitant]
     Active Substance: TEICOPLANIN
     Indication: Dyspnoea
     Dates: start: 20220602, end: 20220605
  74. TARGOCID [Concomitant]
     Active Substance: TEICOPLANIN
     Dates: start: 20220716, end: 20220717
  75. TARGOCID [Concomitant]
     Active Substance: TEICOPLANIN
     Dates: start: 20220724, end: 20220729
  76. TAZOPER [Concomitant]
     Indication: General physical health deterioration
     Dates: start: 20220602, end: 20220605
  77. NYSTATIN [Concomitant]
     Active Substance: NYSTATIN
     Indication: General physical health deterioration
     Dates: start: 20220602, end: 20220605
  78. PULMICORT TURBUHALER [Concomitant]
     Active Substance: BUDESONIDE
     Indication: Dyspnoea
     Dates: start: 20220711, end: 20220717
  79. COMBIVENT [Concomitant]
     Active Substance: ALBUTEROL SULFATE\IPRATROPIUM BROMIDE
     Indication: Dyspnoea
     Dates: start: 20220711, end: 20220717
  80. MEROPENEM [Concomitant]
     Active Substance: MEROPENEM
     Indication: Dyspnoea
     Dates: start: 20220711, end: 20220717
  81. ENOXAPARIN SODIUM [Concomitant]
     Active Substance: ENOXAPARIN SODIUM
     Indication: Dyspnoea
     Dates: start: 20220711, end: 20220715
  82. DEKORT [Concomitant]
     Active Substance: DEXAMETHASONE
     Indication: Dyspnoea
     Dates: start: 20220713, end: 20220717
  83. DEKORT [Concomitant]
     Active Substance: DEXAMETHASONE
     Dates: start: 20220722, end: 20220728
  84. DUPHALAC [Concomitant]
     Active Substance: LACTULOSE
     Indication: Dyspnoea
     Dates: start: 20220717, end: 20220717
  85. ASPIRIN [Concomitant]
     Active Substance: ASPIRIN
     Dates: start: 20220722, end: 20220728

REACTIONS (2)
  - Loss of consciousness [Recovered/Resolved]
  - Alanine aminotransferase increased [Recovered/Resolved]

NARRATIVE: CASE EVENT DATE: 20220114
